FAERS Safety Report 17660020 (Version 1)
Quarter: 2020Q2

REPORT INFORMATION
  Report Type: Spontaneous
  Country: US (occurrence: US)
  Receive Date: 20200413
  Receipt Date: 20200413
  Transmission Date: 20200713
  Serious: No
  Sender: FDA-Public Use
  Company Number: US-BAYER-2020-057755

PATIENT
  Age: 86 Year
  Sex: Female

DRUGS (1)
  1. MIRALAX [Suspect]
     Active Substance: POLYETHYLENE GLYCOL 3350
     Indication: HAEMORRHOIDS
     Dosage: 1 DF, BID
     Route: 048
     Dates: start: 201911

REACTIONS (3)
  - Product use in unapproved indication [Unknown]
  - Product physical issue [None]
  - Off label use [Unknown]

NARRATIVE: CASE EVENT DATE: 201911
